FAERS Safety Report 6716645-X (Version None)
Quarter: 2010Q2

REPORT INFORMATION
  Report Type: 
  Country: None (occurrence: None)
  Receive Date: 20100507
  Receipt Date: 20100426
  Transmission Date: 20101027
  Serious: Yes (Congenital Anomaly)
  Sender: FDA-Public Use
  Company Number: US-GILEAD-2010-0028362

PATIENT
  Sex: Male
  Weight: 2.655 kg

DRUGS (5)
  1. VIREAD [Suspect]
     Indication: HIV INFECTION
     Route: 064
     Dates: start: 20061016, end: 20080618
  2. TRIZIVIR [Concomitant]
     Indication: HIV INFECTION
     Route: 064
     Dates: start: 20040301, end: 20080618
  3. COMBIVIR [Concomitant]
     Indication: HIV INFECTION
     Route: 064
     Dates: start: 20080619
  4. KALETRA [Concomitant]
     Indication: HIV INFECTION
     Route: 064
     Dates: start: 20080619
  5. RETROVIR [Concomitant]
     Indication: HIV INFECTION
     Route: 064
     Dates: start: 20081106, end: 20081106

REACTIONS (2)
  - HYPOSPADIAS [None]
  - POLYDACTYLY [None]
